FAERS Safety Report 4326759-X (Version None)
Quarter: 2004Q1

REPORT INFORMATION
  Report Type: 
  Country: None (occurrence: None)
  Receive Date: 20040330
  Receipt Date: 20040330
  Transmission Date: 20041129
  Serious: Yes (Other)
  Sender: FDA-Public Use
  Company Number: None

PATIENT
  Sex: Female
  Weight: 72.6 kg

DRUGS (2)
  1. GAMMAR-P I.V. [Suspect]
     Indication: POLYMYOSITIS
     Dosage: 69 GRAMS 2 DAYS AM IV
     Route: 042
     Dates: start: 20000101, end: 20040326
  2. GAMMAR-P I.V. [Suspect]

REACTIONS (2)
  - PHARMACEUTICAL PRODUCT COMPLAINT [None]
  - URTICARIA [None]
